FAERS Safety Report 16189009 (Version 1)
Quarter: 2019Q2

REPORT INFORMATION
  Report Type: Other
  Country: GB (occurrence: GB)
  Receive Date: 20190412
  Receipt Date: 20190412
  Transmission Date: 20190711
  Serious: Yes (Other)
  Sender: FDA-Public Use
  Company Number: GB-STRIDES ARCOLAB LIMITED-2019SP003065

PATIENT
  Age: 16 Year

DRUGS (1)
  1. VANCOMYCIN [Suspect]
     Active Substance: VANCOMYCIN
     Indication: PRODUCT USED FOR UNKNOWN INDICATION
     Dosage: 10 ML, UNKNOWN (NEAT BOLUS)
     Route: 040
     Dates: start: 20181125

REACTIONS (2)
  - Pallor [Unknown]
  - Malaise [Unknown]

NARRATIVE: CASE EVENT DATE: 20181125
